FAERS Safety Report 22092917 (Version 1)
Quarter: 2023Q1

REPORT INFORMATION
  Report Type: Spontaneous
  Country: US (occurrence: None)
  Receive Date: 20230313
  Receipt Date: 20230313
  Transmission Date: 20230417
  Serious: Yes (Other)
  Sender: FDA-Public Use
  Company Number: None

PATIENT
  Sex: Female

DRUGS (1)
  1. OXALIPLATIN [Suspect]
     Active Substance: OXALIPLATIN

REACTIONS (9)
  - Infusion related reaction [None]
  - Vascular pain [None]
  - Inflammatory pain [None]
  - Catheter site hypersensitivity [None]
  - Reaction to preservatives [None]
  - Dysarthria [None]
  - Pain in extremity [None]
  - Muscular weakness [None]
  - Hypersensitivity [None]
